FAERS Safety Report 5472804-8 (Version None)
Quarter: 2007Q4

REPORT INFORMATION
  Report Type: 
  Country: None (occurrence: None)
  Receive Date: 20071001
  Receipt Date: 20061226
  Transmission Date: 20080405
  Serious: No
  Sender: FDA-Public Use
  Company Number: US-ASTRAZENECA-2006UW28528

PATIENT
  Age: 66 Year
  Sex: Female
  Weight: 52.2 kg

DRUGS (1)
  1. ARIMIDEX [Suspect]
     Indication: BREAST CANCER FEMALE
     Route: 048
     Dates: start: 20061001

REACTIONS (4)
  - ANXIETY [None]
  - DECREASED APPETITE [None]
  - FEELING JITTERY [None]
  - WEIGHT DECREASED [None]
